FAERS Safety Report 5958333-3 (Version None)
Quarter: 2008Q4

REPORT INFORMATION
  Report Type: 
  Country: None (occurrence: None)
  Receive Date: 20081117
  Receipt Date: 20081117
  Transmission Date: 20090506
  Serious: Yes (Life-Threatening, Disabling)
  Sender: FDA-Public Use
  Company Number: None

PATIENT
  Age: 27 Year
  Sex: Female
  Weight: 90.7194 kg

DRUGS (1)
  1. FLONASE [Suspect]
     Indication: HYPERSENSITIVITY
     Dosage: 2 NASAL SQUIRTS ONCE DAILY NASAL
     Route: 045
     Dates: start: 19980101, end: 20081001

REACTIONS (1)
  - CUSHING'S SYNDROME [None]
